FAERS Safety Report 17052278 (Version 1)
Quarter: 2019Q4

REPORT INFORMATION
  Report Type: Spontaneous
  Country: US (occurrence: US)
  Receive Date: 20191120
  Receipt Date: 20191120
  Transmission Date: 20200122
  Serious: No
  Sender: FDA-Public Use
  Company Number: US-MYLANLABS-2019M1106197

PATIENT
  Age: 72 Year
  Sex: Female
  Weight: 68 kg

DRUGS (2)
  1. PERPHENAZINE TABLETS USP [Suspect]
     Active Substance: PERPHENAZINE
     Indication: NERVOUSNESS
     Dosage: 1 DOSAGE FORM
     Route: 048
     Dates: start: 20191101, end: 20191104
  2. AMITRIPTYLINE HYDROCHLORIDE. [Suspect]
     Active Substance: AMITRIPTYLINE HYDROCHLORIDE
     Indication: NERVOUSNESS
     Dosage: 1 DOSAGE FORM
     Route: 048
     Dates: start: 20191101, end: 20191104

REACTIONS (5)
  - Muscle spasms [Recovering/Resolving]
  - Insomnia [Recovering/Resolving]
  - Restlessness [Recovering/Resolving]
  - Off label use [Recovered/Resolved]
  - Paraesthesia [Recovering/Resolving]

NARRATIVE: CASE EVENT DATE: 20191103
